FAERS Safety Report 20084766 (Version 1)
Quarter: 2021Q4

REPORT INFORMATION
  Report Type: Spontaneous
  Country: US (occurrence: US)
  Receive Date: 20211118
  Receipt Date: 20211118
  Transmission Date: 20220304
  Serious: Yes (Other)
  Sender: FDA-Public Use
  Company Number: US-GLAXOSMITHKLINE-US2021GSK236924

PATIENT
  Sex: Female

DRUGS (12)
  1. ZANTAC [Suspect]
     Active Substance: RANITIDINE HYDROCHLORIDE
     Indication: Dyspepsia
     Dosage: 75 MG,AS NEEDED
     Route: 065
  2. ZANTAC [Suspect]
     Active Substance: RANITIDINE HYDROCHLORIDE
     Dosage: 150 MG,AS NEEDED
     Route: 065
  3. ZANTAC [Suspect]
     Active Substance: RANITIDINE HYDROCHLORIDE
     Indication: Dyspepsia
     Dosage: 75 MG,AS NEEDED
     Route: 065
  4. ZANTAC [Suspect]
     Active Substance: RANITIDINE HYDROCHLORIDE
     Dosage: 150 MG,AS NEEDED
     Route: 065
  5. RANITIDINE HYDROCHLORIDE [Suspect]
     Active Substance: RANITIDINE HYDROCHLORIDE
     Indication: Dyspepsia
     Dosage: 75 MG,AS NEEDED
     Route: 065
     Dates: start: 198901, end: 201601
  6. RANITIDINE HYDROCHLORIDE [Suspect]
     Active Substance: RANITIDINE HYDROCHLORIDE
     Dosage: 150 MG,AS NEEDED
     Route: 065
     Dates: start: 198901, end: 201601
  7. RANITIDINE HYDROCHLORIDE [Suspect]
     Active Substance: RANITIDINE HYDROCHLORIDE
     Indication: Dyspepsia
     Dosage: 75 MG,AS NEEDED
     Route: 065
     Dates: start: 198901, end: 201601
  8. RANITIDINE HYDROCHLORIDE [Suspect]
     Active Substance: RANITIDINE HYDROCHLORIDE
     Dosage: 150 MG,AS NEEDED
     Route: 065
     Dates: start: 198901, end: 201601
  9. RANITIDINE [Suspect]
     Active Substance: RANITIDINE
     Indication: Dyspepsia
     Dosage: 75 MG,AS NEEDED
     Route: 065
     Dates: start: 198901, end: 201601
  10. RANITIDINE [Suspect]
     Active Substance: RANITIDINE
     Dosage: 150 MG,AS NEEDED
     Route: 065
     Dates: start: 198901, end: 201601
  11. RANITIDINE [Suspect]
     Active Substance: RANITIDINE
     Indication: Dyspepsia
     Dosage: 75 MG,AS NEEDED
     Route: 065
     Dates: start: 198901, end: 201601
  12. RANITIDINE [Suspect]
     Active Substance: RANITIDINE
     Dosage: 150 MG,AS NEEDED
     Route: 065
     Dates: start: 198901, end: 201601

REACTIONS (1)
  - Breast cancer [Unknown]
